FAERS Safety Report 8492879-1 (Version None)
Quarter: 2012Q3

REPORT INFORMATION
  Report Type: 
  Country: None (occurrence: None)
  Receive Date: 20120706
  Receipt Date: 20120625
  Transmission Date: 20120928
  Serious: Yes (Other)
  Sender: FDA-Public Use
  Company Number: CA-JNJFOC-20120612543

PATIENT
  Sex: Female
  Weight: 56 kg

DRUGS (13)
  1. IMODIUM [Concomitant]
     Route: 065
  2. POTASSIUM [Concomitant]
     Route: 065
  3. IRON [Concomitant]
     Route: 065
  4. VIT B [Concomitant]
     Route: 065
  5. QUININE SULFATE [Concomitant]
     Route: 065
  6. ETIDRONATE DISODIUM [Concomitant]
     Route: 065
  7. PREDNISONE [Concomitant]
     Route: 065
  8. MAGNESIUM SULFATE [Concomitant]
     Route: 065
  9. COUMADIN [Concomitant]
     Route: 065
  10. ALL OTHER THERAPEUTICS [Concomitant]
     Route: 065
  11. REMICADE [Suspect]
     Indication: CROHN'S DISEASE
     Route: 042
     Dates: start: 20070601
  12. RABEPRAZOLE SODIUM [Concomitant]
     Route: 065
  13. DEXILANT [Concomitant]
     Route: 065

REACTIONS (1)
  - WEIGHT DECREASED [None]
